FAERS Safety Report 7994334-1 (Version None)
Quarter: 2011Q4

REPORT INFORMATION
  Report Type: 
  Country: None (occurrence: None)
  Receive Date: 20111220
  Receipt Date: 20110113
  Transmission Date: 20120403
  Serious: Yes (Hospitalization)
  Sender: FDA-Public Use
  Company Number: US-GLAXOSMITHKLINE-A0905868A

PATIENT
  Age: 80 Year
  Sex: Female

DRUGS (7)
  1. PRAVASTATIN [Concomitant]
  2. LISINOPRIL [Concomitant]
  3. VITAMIN [Concomitant]
  4. FISH OIL [Concomitant]
  5. SORIATANE [Suspect]
     Indication: PSORIASIS
     Dosage: 25MG THREE TIMES PER WEEK
     Route: 048
     Dates: start: 20040101
  6. COUMADIN [Concomitant]
  7. BUSPAR [Concomitant]

REACTIONS (1)
  - MYOCARDIAL INFARCTION [None]
